FAERS Safety Report 13279602 (Version 1)
Quarter: 2017Q1

REPORT INFORMATION
  Report Type: Spontaneous
  Country: US (occurrence: US)
  Receive Date: 20170228
  Receipt Date: 20170228
  Transmission Date: 20170428
  Serious: Yes (Other)
  Sender: FDA-Public Use
  Company Number: None

PATIENT
  Age: 58 Year
  Sex: Female
  Weight: 60.75 kg

DRUGS (4)
  1. BUPROPION SR 150MG [Suspect]
     Active Substance: BUPROPION
     Indication: DEPRESSION
     Dosage: ?          QUANTITY:90 TABLET(S);?
     Route: 048
     Dates: start: 20170224, end: 20170224
  2. BUPROPION SR 150MG [Suspect]
     Active Substance: BUPROPION
     Indication: ANXIETY
     Dosage: ?          QUANTITY:90 TABLET(S);?
     Route: 048
     Dates: start: 20170224, end: 20170224
  3. FAMITODINE [Concomitant]
  4. LUNESTA [Concomitant]
     Active Substance: ESZOPICLONE

REACTIONS (7)
  - Arthralgia [None]
  - Diarrhoea [None]
  - Influenza like illness [None]
  - Chills [None]
  - Skin disorder [None]
  - Nausea [None]
  - Myalgia [None]

NARRATIVE: CASE EVENT DATE: 20170224
